FAERS Safety Report 6644601-9 (Version None)
Quarter: 2010Q1

REPORT INFORMATION
  Report Type: 
  Country: None (occurrence: None)
  Receive Date: 20100305
  Receipt Date: 20100217
  Transmission Date: 20100710
  Serious: No
  Sender: FDA-Public Use
  Company Number: 2010-00260

PATIENT
  Age: 25 Year
  Sex: Female
  Weight: 66.2252 kg

DRUGS (4)
  1. ZICAM COLD REMEDY ORAL MIST [Suspect]
     Dosage: Q 4-5 HRS - 3 DAYS { 1-2 MONTHS AGO}
  2. AIRBORNE [Concomitant]
  3. NETI POT [Concomitant]
  4. GREEN TEA WITH ECHINACHEA [Concomitant]

REACTIONS (1)
  - AGEUSIA [None]
